FAERS Safety Report 17447394 (Version 2)
Quarter: 2020Q1

REPORT INFORMATION
  Report Type: Spontaneous
  Country: CH (occurrence: CH)
  Receive Date: 20200221
  Receipt Date: 20200311
  Transmission Date: 20200409
  Serious: Yes (Life-Threatening, Hospitalization)
  Sender: FDA-Public Use
  Company Number: CH-NAPPMUNDI-GBR-2020-0075152

PATIENT
  Age: 23 Year
  Sex: Female
  Weight: 33 kg

DRUGS (9)
  1. LAXOBERON [Concomitant]
     Active Substance: SODIUM PICOSULFATE
     Dosage: UNK, PRN
  2. PHOSPHORIC ACID SODIUM [Concomitant]
     Dosage: UNK, PRN
  3. PALLADONE [Suspect]
     Active Substance: HYDROMORPHONE HYDROCHLORIDE
     Indication: PRODUCT USED FOR UNKNOWN INDICATION
     Dosage: 1.3 MG 6X/ DAY (STRENGTH 1.3MG)
     Route: 048
     Dates: start: 20180704, end: 20180704
  4. ORFIRIL [Concomitant]
     Active Substance: VALPROATE SODIUM
  5. PERFALGAN [Concomitant]
     Active Substance: ACETAMINOPHEN
  6. ALGIFOR [Concomitant]
     Active Substance: IBUPROFEN
  7. HEPARINE                           /00027701/ [Concomitant]
     Active Substance: HEPARIN SODIUM
  8. LEVETIRACETAM. [Concomitant]
     Active Substance: LEVETIRACETAM
  9. NEXIUM [Concomitant]
     Active Substance: ESOMEPRAZOLE MAGNESIUM

REACTIONS (2)
  - Altered state of consciousness [Recovered/Resolved]
  - Respiratory failure [Recovered/Resolved]

NARRATIVE: CASE EVENT DATE: 20180704
